FAERS Safety Report 18301742 (Version 1)
Quarter: 2020Q3

REPORT INFORMATION
  Report Type: Other
  Country: US (occurrence: US)
  Receive Date: 20200923
  Receipt Date: 20200923
  Transmission Date: 20201103
  Serious: Yes (Other)
  Sender: FDA-Public Use
  Company Number: US-ROCHE-2633557

PATIENT
  Age: 71 Year
  Sex: Female
  Weight: 67.65 kg

DRUGS (7)
  1. ACTEMRA [Suspect]
     Active Substance: TOCILIZUMAB
     Indication: GIANT CELL ARTERITIS
     Route: 058
     Dates: start: 2019
  2. ACTEMRA [Suspect]
     Active Substance: TOCILIZUMAB
     Indication: PULMONARY HYPERTENSION
     Route: 058
  3. WARFARIN [Concomitant]
     Active Substance: WARFARIN
     Indication: ANTICOAGULANT THERAPY
  4. ACTEMRA [Suspect]
     Active Substance: TOCILIZUMAB
  5. ACTEMRA [Suspect]
     Active Substance: TOCILIZUMAB
  6. ACTEMRA [Suspect]
     Active Substance: TOCILIZUMAB
  7. ACTEMRA [Suspect]
     Active Substance: TOCILIZUMAB

REACTIONS (7)
  - Spinal fracture [Unknown]
  - Dyspnoea [Not Recovered/Not Resolved]
  - Gait disturbance [Unknown]
  - Thrombosis [Unknown]
  - Dysstasia [Unknown]
  - Osteoporosis [Unknown]
  - Hypertension [Unknown]

NARRATIVE: CASE EVENT DATE: 202004
